FAERS Safety Report 9518861 (Version 1)
Quarter: 2013Q3

REPORT INFORMATION
  Report Type: Spontaneous
  Country: US (occurrence: None)
  Receive Date: 20130910
  Receipt Date: 20130910
  Transmission Date: 20140515
  Serious: Yes (Hospitalization)
  Sender: FDA-Public Use
  Company Number: None

PATIENT
  Age: 55 Year
  Sex: Male
  Weight: 82.5 kg

DRUGS (2)
  1. MERREM [Suspect]
     Indication: PNEUMONITIS
     Dates: start: 20130827
  2. INVANZ [Suspect]
     Indication: PNEUMONITIS
     Dates: start: 20130827

REACTIONS (4)
  - Oxygen saturation decreased [None]
  - Malaise [None]
  - Pneumothorax [None]
  - Grand mal convulsion [None]
